FAERS Safety Report 6185647-7 (Version None)
Quarter: 2009Q2

REPORT INFORMATION
  Report Type: 
  Country: None (occurrence: None)
  Receive Date: 20090507
  Receipt Date: 20090430
  Transmission Date: 20091009
  Serious: Yes (Hospitalization)
  Sender: FDA-Public Use
  Company Number: TCI2009A00525

PATIENT
  Age: 72 Year
  Sex: Female

DRUGS (6)
  1. TAKEPRON OD TABLETS 15 (LANSOPRAZOLE) [Suspect]
     Indication: REFLUX OESOPHAGITIS
     Dosage: 15 MG (15 MG, 1 IN 1 D), PER ORAL
     Route: 048
     Dates: start: 20080609, end: 20081004
  2. CANDESARTAN CILEXETIL [Concomitant]
  3. ASPIRIN [Concomitant]
  4. PRAVASTATIN [Concomitant]
  5. HALCION [Concomitant]
  6. ALPRAZOLAM [Concomitant]

REACTIONS (6)
  - ABDOMINAL PAIN LOWER [None]
  - COLITIS COLLAGENOUS [None]
  - COLITIS ISCHAEMIC [None]
  - DIARRHOEA [None]
  - HAEMATOCHEZIA [None]
  - LARGE INTESTINAL ULCER [None]
